FAERS Safety Report 5661000-7 (Version None)
Quarter: 2008Q1

REPORT INFORMATION
  Report Type: 
  Country: None (occurrence: None)
  Receive Date: 20080311
  Receipt Date: 20080219
  Transmission Date: 20080703
  Serious: No
  Sender: FDA-Public Use
  Company Number: US-BOEHRINGER INGELHEIM GMBH, GERMANY-2008-BP-02451BP

PATIENT
  Sex: Female

DRUGS (2)
  1. SPIRIVA [Suspect]
     Indication: CHRONIC OBSTRUCTIVE PULMONARY DISEASE
     Route: 055
     Dates: start: 20070901, end: 20080215
  2. ADVAIR DISKUS 100/50 [Concomitant]

REACTIONS (10)
  - ARTHROSCOPY [None]
  - DRY EYE [None]
  - DRY MOUTH [None]
  - DYSPHONIA [None]
  - EAR DISCOMFORT [None]
  - MUCOUS MEMBRANE DISORDER [None]
  - NASAL DRYNESS [None]
  - SINUS CONGESTION [None]
  - TENDONITIS [None]
  - URINARY TRACT INFECTION [None]
